FAERS Safety Report 6890381-1 (Version None)
Quarter: 2010Q3

REPORT INFORMATION
  Report Type: 
  Country: None (occurrence: None)
  Receive Date: 20100730
  Receipt Date: 20081013
  Transmission Date: 20110219
  Serious: No
  Sender: FDA-Public Use
  Company Number: US-PFIZER INC-2008085774

PATIENT
  Sex: Male

DRUGS (11)
  1. LIPITOR [Suspect]
  2. HERBAL PREPARATION [Concomitant]
  3. VITAMIN A [Concomitant]
  4. VITAMIN B [Concomitant]
  5. VITAMIN B1 TAB [Concomitant]
  6. VITAMIN B-12 [Concomitant]
  7. NICOTINAMIDE [Concomitant]
  8. FISH OIL [Concomitant]
  9. VITAMIN E [Concomitant]
  10. NIACIN [Concomitant]
  11. UBIDECARENONE [Concomitant]

REACTIONS (1)
  - CHROMATURIA [None]
